FAERS Safety Report 8958463 (Version 1)
Quarter: 2012Q4

REPORT INFORMATION
  Report Type: Spontaneous
  Country: CA (occurrence: None)
  Receive Date: 20121204
  Receipt Date: 20121204
  Transmission Date: 20130627
  Serious: Yes (Hospitalization)
  Sender: FDA-Public Use
  Company Number: 2012-7954

PATIENT
  Age: 50 Year
  Sex: Female

DRUGS (1)
  1. SOMATULINE [Suspect]
     Indication: ACROMEGALY
     Dosage: 120 mg (120 mg, 1 in 28 d), subcutaneous
     Route: 058
     Dates: start: 20120223

REACTIONS (2)
  - Headache [None]
  - Radiotherapy [None]
